FAERS Safety Report 7318606-9 (Version None)
Quarter: 2011Q1

REPORT INFORMATION
  Report Type: 
  Country: None (occurrence: None)
  Receive Date: 20110223
  Receipt Date: 20110223
  Transmission Date: 20110831
  Serious: Yes (Other)
  Sender: FDA-Public Use
  Company Number: None

PATIENT
  Sex: Female
  Weight: 63.5036 kg

DRUGS (2)
  1. SAVELLA [Suspect]
     Indication: FIBROMYALGIA
     Dosage: PO
     Route: 048
     Dates: start: 20110209, end: 20110218
  2. SAVELLA [Suspect]
     Indication: PAIN
     Dosage: PO
     Route: 048
     Dates: start: 20110209, end: 20110218

REACTIONS (1)
  - HYPOAESTHESIA ORAL [None]
